FAERS Safety Report 5680384-7 (Version None)
Quarter: 2008Q1

REPORT INFORMATION
  Report Type: 
  Country: None (occurrence: None)
  Receive Date: 20080326
  Receipt Date: 20080325
  Transmission Date: 20080703
  Serious: Yes (Other)
  Sender: FDA-Public Use
  Company Number: A0717311A

PATIENT
  Age: 27 Year
  Sex: Female
  Weight: 87 kg

DRUGS (1)
  1. ALLI [Suspect]
     Indication: WEIGHT LOSS DIET
     Route: 048
     Dates: start: 20080228, end: 20080324

REACTIONS (1)
  - HEPATIC ENZYME INCREASED [None]
